FAERS Safety Report 8330036-X (Version None)
Quarter: 2012Q2

REPORT INFORMATION
  Report Type: 
  Country: None (occurrence: None)
  Receive Date: 20120502
  Receipt Date: 20120421
  Transmission Date: 20120825
  Serious: Yes (Other)
  Sender: FDA-Public Use
  Company Number: CA-JNJFOC-20120410091

PATIENT
  Sex: Female
  Weight: 54 kg

DRUGS (3)
  1. REMICADE [Suspect]
     Indication: COLITIS ULCERATIVE
     Route: 042
     Dates: start: 20110702
  2. IMURAN [Concomitant]
     Route: 065
  3. MESALAMINE [Concomitant]
     Route: 065

REACTIONS (1)
  - RECTAL HAEMORRHAGE [None]
